FAERS Safety Report 4342240-6 (Version None)
Quarter: 2004Q2

REPORT INFORMATION
  Report Type: 
  Country: None (occurrence: None)
  Receive Date: 20040415
  Receipt Date: 20040405
  Transmission Date: 20050107
  Serious: Yes (Other)
  Sender: FDA-Public Use
  Company Number: GB-JNJFOC-20040401608

PATIENT
  Age: 73 Year
  Sex: Female
  Weight: 60 kg

DRUGS (1)
  1. DURAGESIC [Suspect]
     Indication: ANALGESIC EFFECT
     Dosage: 50 UG/HR, TRANSDERMAL
     Route: 062
     Dates: start: 20040318, end: 20040319

REACTIONS (4)
  - ANAPHYLACTOID REACTION [None]
  - APPLICATION SITE ERYTHEMA [None]
  - APPLICATION SITE PRURITUS [None]
  - DERMATITIS CONTACT [None]
